FAERS Safety Report 20221249 (Version 1)
Quarter: 2021Q4

REPORT INFORMATION
  Report Type: Spontaneous
  Country: US (occurrence: US)
  Receive Date: 20211223
  Receipt Date: 20211223
  Transmission Date: 20220303
  Serious: No
  Sender: FDA-Public Use
  Company Number: US-NOVARTISTESTPH-NVSC2021US294110

PATIENT
  Sex: Female

DRUGS (1)
  1. ISOPTO CARPINE [Suspect]
     Active Substance: PILOCARPINE HYDROCHLORIDE
     Indication: Glaucoma
     Dosage: UNK
     Route: 065

REACTIONS (1)
  - Drug ineffective [Unknown]
